FAERS Safety Report 5409798-7 (Version None)
Quarter: 2007Q3

REPORT INFORMATION
  Report Type: 
  Country: None (occurrence: None)
  Receive Date: 20070809
  Receipt Date: 20070729
  Transmission Date: 20080115
  Serious: Yes (Other)
  Sender: FDA-Public Use
  Company Number: BR-ROCHE-509563

PATIENT
  Age: 40 Year
  Sex: Female
  Weight: 48 kg

DRUGS (1)
  1. ISOTRETINOIN [Suspect]
     Indication: ACNE
     Dosage: DOSAGE REGIMEN REPORTED AS 20 MG ONE DAY AND 30 MG THE FOLLOWING ONE.
     Route: 048
     Dates: start: 20051101, end: 20060501

REACTIONS (3)
  - ALOPECIA [None]
  - ASTHENIA [None]
  - HYPERTHYROIDISM [None]
